FAERS Safety Report 8500489-2 (Version None)
Quarter: 2012Q3

REPORT INFORMATION
  Report Type: 
  Country: None (occurrence: None)
  Receive Date: 20120710
  Receipt Date: 20120706
  Transmission Date: 20120928
  Serious: Yes (Death)
  Sender: FDA-Public Use
  Company Number: US-ASTRAZENECA-2012SE46146

PATIENT
  Age: 43 Year
  Sex: Male

DRUGS (3)
  1. PROZAC [Concomitant]
  2. PAIN MEDICATION [Concomitant]
  3. SEROQUEL [Suspect]
     Route: 048

REACTIONS (1)
  - DEATH [None]
